FAERS Safety Report 8922288 (Version 2)
Quarter: 2013Q1

REPORT INFORMATION
  Report Type: Spontaneous
  Country: US (occurrence: US)
  Receive Date: 20121123
  Receipt Date: 20130306
  Transmission Date: 20140127
  Serious: Yes (Other)
  Sender: FDA-Public Use
  Company Number: US-009507513-1211USA006499

PATIENT
  Age: 60 Year
  Sex: Male
  Weight: 120 kg

DRUGS (6)
  1. VICTRELIS [Suspect]
     Indication: HEPATITIS C
     Dosage: 800 MG, Q8H
     Route: 048
     Dates: start: 20120520, end: 20130127
  2. RIBAVIRIN [Suspect]
     Indication: HEPATITIS C
     Dosage: 400 MG IN THE MORNING, 200 MG IN THE EVENING
     Route: 048
     Dates: start: 20120420
  3. PEGINTERFERON ALFA-2A [Suspect]
     Indication: HEPATITIS C
     Dosage: 135 MICROGRAM, QW
     Route: 058
     Dates: start: 20120420
  4. LISINOPRIL [Concomitant]
     Indication: BLOOD PRESSURE
     Dosage: UNK
     Route: 048
     Dates: start: 20080612
  5. INSULIN GLARGINE [Concomitant]
     Indication: DIABETES MELLITUS
     Dosage: 4UK, QD
     Route: 058
     Dates: start: 20101112
  6. FORMOTEROL FUMARATE [Concomitant]
     Indication: CHRONIC OBSTRUCTIVE PULMONARY DISEASE
     Dosage: 12 MICROGRAM, BID
     Route: 048
     Dates: start: 20050516

REACTIONS (1)
  - Hypertriglyceridaemia [Recovered/Resolved]
